FAERS Safety Report 19803466 (Version 1)
Quarter: 2021Q3

REPORT INFORMATION
  Report Type: Report from Study
  Country: CA (occurrence: CA)
  Receive Date: 20210908
  Receipt Date: 20210908
  Transmission Date: 20211014
  Serious: Yes (Other)
  Sender: FDA-Public Use
  Company Number: CA-ACCORD-237409

PATIENT
  Age: 46 Year
  Sex: Female

DRUGS (11)
  1. RITUXIMAB. [Suspect]
     Active Substance: RITUXIMAB
     Indication: AUTOIMMUNE HEPATITIS
     Dosage: 1 EVERY 2 WEEKS
     Route: 041
  2. PARACETAMOL [Concomitant]
     Active Substance: ACETAMINOPHEN
     Indication: PREMEDICATION
     Route: 048
  3. METHYLPREDNISOLONE. [Concomitant]
     Active Substance: METHYLPREDNISOLONE
     Indication: PREMEDICATION
     Route: 042
  4. MEZAVANT [Concomitant]
     Active Substance: MESALAMINE
     Dosage: EXTENDED RELEASE TABLET
  5. VENLAFAXINE [Concomitant]
     Active Substance: VENLAFAXINE HYDROCHLORIDE
  6. DEXILANT [Concomitant]
     Active Substance: DEXLANSOPRAZOLE
  7. ELAVIL [Concomitant]
     Active Substance: AMITRIPTYLINE HYDROCHLORIDE
  8. HYDROCORTISONE. [Concomitant]
     Active Substance: HYDROCORTISONE
  9. MYCOPHENOLIC ACID. [Suspect]
     Active Substance: MYCOPHENOLIC ACID
     Indication: PRODUCT USED FOR UNKNOWN INDICATION
  10. DIPHENHYDRAMINE. [Concomitant]
     Active Substance: DIPHENHYDRAMINE
     Indication: PREMEDICATION
     Route: 048
  11. PMS?AZITHROMYCIN [Concomitant]
     Active Substance: AZITHROMYCIN ANHYDROUS

REACTIONS (2)
  - Bell^s palsy [Unknown]
  - Drug ineffective [Unknown]
